FAERS Safety Report 25945214 (Version 3)
Quarter: 2025Q4

REPORT INFORMATION
  Report Type: Spontaneous
  Country: US (occurrence: US)
  Receive Date: 20251021
  Receipt Date: 20251223
  Transmission Date: 20260118
  Serious: Yes (Hospitalization, Other)
  Sender: BRISTOL-MYERS SQUIBB COMPANY
  Company Number: US-BRISTOL-MYERS SQUIBB COMPANY-2025-142910

PATIENT
  Age: 59 Year
  Sex: Female

DRUGS (3)
  1. ORENCIA [Suspect]
     Active Substance: ABATACEPT
     Indication: Rheumatoid arthritis
     Dosage: EVERY 7 DAYS
     Route: 058
     Dates: start: 202501
  2. ORENCIA [Suspect]
     Active Substance: ABATACEPT
     Dosage: EVERY 7 DAYS
     Route: 058
  3. ORENCIA [Suspect]
     Active Substance: ABATACEPT
     Dosage: EVERY 7 DAYS
     Route: 058

REACTIONS (3)
  - Systemic lupus erythematosus [Unknown]
  - Rheumatoid arthritis [Unknown]
  - Hip fracture [Unknown]

NARRATIVE: CASE EVENT DATE: 20250301
